FAERS Safety Report 10097321 (Version 5)
Quarter: 2014Q3

REPORT INFORMATION
  Report Type: Spontaneous
  Country: NO (occurrence: NO)
  Receive Date: 20140423
  Receipt Date: 20140804
  Transmission Date: 20150326
  Serious: Yes (Life-Threatening, Hospitalization, Other)
  Sender: FDA-Public Use
  Company Number: NO-AMGEN-NORSP2014029140

PATIENT
  Age: 62 Year
  Sex: Male

DRUGS (8)
  1. METHOTREXATE [Concomitant]
     Active Substance: METHOTREXATE
     Dosage: 25 MG, WEEKLY (10 TABLETS OF 2.5 MG)
     Route: 048
     Dates: start: 20120102
  2. MICARDIS [Concomitant]
     Active Substance: TELMISARTAN
     Dosage: 1 DF, 1X/DAY
     Route: 048
  3. PREDNISOLON                        /00016201/ [Concomitant]
     Active Substance: PREDNISOLONE
     Dosage: 7.5 MG, UNK
  4. PREDNISOLON                        /00016201/ [Concomitant]
     Active Substance: PREDNISOLONE
     Dosage: 2.5 MG, QD
  5. ENBREL [Suspect]
     Active Substance: ETANERCEPT
     Indication: SERONEGATIVE ARTHRITIS
     Dosage: 50 MG, WEEKLY
     Route: 058
     Dates: start: 20120604, end: 20140205
  6. PREDNISOLON                        /00016201/ [Concomitant]
     Active Substance: PREDNISOLONE
     Dosage: 5 MG, 1X/DAY
     Route: 048
  7. CALCIGRAN FORTE [Concomitant]
     Dosage: 2 TABLETS IN THE MORNING
  8. FOLSYRE NAF [Concomitant]
     Active Substance: FOLIC ACID
     Dosage: 1 MG, 1X/DAY
     Route: 048

REACTIONS (13)
  - Osteolysis [Unknown]
  - Cough [Unknown]
  - Oedema mucosal [Unknown]
  - Bone cancer [Unknown]
  - Weight decreased [Unknown]
  - Night sweats [Unknown]
  - Lumbar vertebral fracture [Unknown]
  - Bone lesion [Unknown]
  - Angioimmunoblastic T-cell lymphoma [Not Recovered/Not Resolved]
  - Lymphadenopathy [Not Recovered/Not Resolved]
  - T-cell lymphoma [Unknown]
  - Spinal column stenosis [Unknown]
  - Lung disorder [Unknown]

NARRATIVE: CASE EVENT DATE: 201306
